FAERS Safety Report 4932063-9 (Version None)
Quarter: 2006Q1

REPORT INFORMATION
  Report Type: 
  Country: None (occurrence: None)
  Receive Date: 20060303
  Receipt Date: 20060223
  Transmission Date: 20060701
  Serious: Yes (Other)
  Sender: FDA-Public Use
  Company Number: PHBS2006BR02992

PATIENT
  Age: 29 Year
  Sex: Female
  Weight: 70 kg

DRUGS (3)
  1. TRILEPTAL [Suspect]
     Indication: BIPOLAR DISORDER
     Dosage: 150 MG, BID
     Route: 048
     Dates: start: 20060217, end: 20060221
  2. TRILEPTAL [Suspect]
     Dosage: 150 MG, QHS
     Route: 048
     Dates: start: 20060222, end: 20060224
  3. TRILEPTAL [Suspect]
     Dosage: 150 MG, BID
     Route: 048
     Dates: start: 20060225

REACTIONS (13)
  - DIZZINESS [None]
  - EATING DISORDER [None]
  - HEADACHE [None]
  - HYPOAESTHESIA [None]
  - INFLUENZA LIKE ILLNESS [None]
  - MALAISE [None]
  - NAUSEA [None]
  - PYREXIA [None]
  - SLEEP DISORDER [None]
  - SOMNOLENCE [None]
  - TREMOR [None]
  - VERTIGO [None]
  - VISION BLURRED [None]
